FAERS Safety Report 24905677 (Version 1)
Quarter: 2025Q1

REPORT INFORMATION
  Report Type: Report from Study
  Country: US (occurrence: US)
  Receive Date: 20250130
  Receipt Date: 20250130
  Transmission Date: 20250408
  Serious: No
  Sender: HRA PHARMA
  Company Number: US-ORG100014127-2024000209

PATIENT
  Age: 72 Year
  Sex: Female

DRUGS (3)
  1. METOPIRONE [Suspect]
     Active Substance: METYRAPONE
     Indication: Cushing^s syndrome
     Dosage: 250 MG; 3 CAPSULES THREE TIMES DAILY
     Route: 048
     Dates: start: 20240629, end: 202407
  2. FUROSEMIDE [Concomitant]
     Active Substance: FUROSEMIDE
     Indication: Product used for unknown indication
  3. PROCHLORPER TAB 5MG [Concomitant]
     Indication: Product used for unknown indication

REACTIONS (1)
  - Off label use [Unknown]
